FAERS Safety Report 10685045 (Version 1)
Quarter: 2014Q4

REPORT INFORMATION
  Report Type: Spontaneous
  Country: US (occurrence: None)
  Receive Date: 20141230
  Receipt Date: 20141230
  Transmission Date: 20150529
  Serious: No
  Sender: FDA-Public Use
  Company Number: None

PATIENT
  Age: 47 Year
  Sex: Male
  Weight: 75.75 kg

DRUGS (1)
  1. LORAZEPAM 1 MG [Suspect]
     Active Substance: LORAZEPAM
     Indication: PRODUCT USED FOR UNKNOWN INDICATION
     Dosage: 1 PILL, THREE TIMES DAILY, TAKEN BY MOUTH
     Route: 048
     Dates: start: 20141219, end: 20141221

REACTIONS (8)
  - Anxiety [None]
  - Paraesthesia [None]
  - Disturbance in attention [None]
  - Hypoaesthesia [None]
  - Heart rate increased [None]
  - Panic reaction [None]
  - Blood pressure increased [None]
  - Insomnia [None]

NARRATIVE: CASE EVENT DATE: 20141219
